FAERS Safety Report 7142491-1 (Version None)
Quarter: 2010Q4

REPORT INFORMATION
  Report Type: 
  Country: None (occurrence: None)
  Receive Date: 20101117
  Receipt Date: 20100914
  Transmission Date: 20110411
  Serious: No
  Sender: FDA-Public Use
  Company Number: WAES 1006USA02717

PATIENT
  Age: 49 Year
  Sex: Male
  Weight: 75.2971 kg

DRUGS (8)
  1. ISENTRESS [Suspect]
     Dosage: 400 MG/BID/PO
     Route: 048
     Dates: start: 20100309
  2. ANDROGEL [Concomitant]
  3. ACYCLOVIR [Concomitant]
  4. ALLOPURINOL [Concomitant]
  5. ATENOLOL [Concomitant]
  6. NEVIRAPINE [Concomitant]
  7. RITONAVIR [Concomitant]
  8. SAQUINAVIR [Concomitant]

REACTIONS (1)
  - BLOOD UREA INCREASED [None]
